FAERS Safety Report 20389650 (Version 1)
Quarter: 2022Q1

REPORT INFORMATION
  Report Type: Spontaneous
  Country: US (occurrence: US)
  Receive Date: 20220128
  Receipt Date: 20220128
  Transmission Date: 20220423
  Serious: No
  Sender: FDA-Public Use
  Company Number: US-GLAXOSMITHKLINE-USCH2022003859

PATIENT

DRUGS (4)
  1. ADVIL DUAL ACTION WITH ACETAMINOPHEN [Suspect]
     Active Substance: ACETAMINOPHEN\IBUPROFEN
     Indication: Oropharyngeal pain
     Dosage: UNK
  2. ADVIL DUAL ACTION WITH ACETAMINOPHEN [Suspect]
     Active Substance: ACETAMINOPHEN\IBUPROFEN
     Indication: Chest pain
  3. ADVIL DUAL ACTION WITH ACETAMINOPHEN [Suspect]
     Active Substance: ACETAMINOPHEN\IBUPROFEN
     Indication: Arthritis
  4. ADVIL DUAL ACTION WITH ACETAMINOPHEN [Suspect]
     Active Substance: ACETAMINOPHEN\IBUPROFEN
     Indication: Pain

REACTIONS (2)
  - Drug effective for unapproved indication [Unknown]
  - Product use in unapproved indication [Unknown]
